FAERS Safety Report 8838537 (Version 1)
Quarter: 2012Q4

REPORT INFORMATION
  Report Type: 
  Country: US (occurrence: US)
  Receive Date: 20121012
  Receipt Date: 20121012
  Transmission Date: 20130627
  Serious: Yes (Other)
  Sender: FDA-Public Use
  Company Number: US-US-EMD SERONO, INC.-7165933

PATIENT
  Age: 22 None
  Sex: Female

DRUGS (2)
  1. REBIF [Suspect]
     Indication: MULTIPLE SCLEROSIS
     Route: 058
     Dates: start: 20120319
  2. UNSPECIFIED MEDICATION [Concomitant]
     Indication: PREMEDICATION

REACTIONS (5)
  - Nephrolithiasis [Unknown]
  - Hepatic enzyme increased [Unknown]
  - Influenza like illness [Recovered/Resolved]
  - Injection site erythema [Unknown]
  - Injection site pain [Unknown]
